FAERS Safety Report 11829329 (Version 2)
Quarter: 2016Q1

REPORT INFORMATION
  Report Type: Report from Study
  Country: PH (occurrence: PH)
  Receive Date: 20151211
  Receipt Date: 20160112
  Transmission Date: 20160525
  Serious: Yes (Other)
  Sender: FDA-Public Use
  Company Number: PHHY2015PH157986

PATIENT
  Age: 51 Year
  Sex: Male

DRUGS (1)
  1. TASIGNA [Suspect]
     Active Substance: NILOTINIB
     Indication: CHRONIC MYELOID LEUKAEMIA
     Dosage: 150 MG, QD
     Route: 048
     Dates: start: 201401

REACTIONS (6)
  - Sinusitis [Recovered/Resolved]
  - Macular oedema [Not Recovered/Not Resolved]
  - Alanine aminotransferase increased [Unknown]
  - Oedema peripheral [Recovering/Resolving]
  - Calcium ionised decreased [Not Recovered/Not Resolved]
  - Vertigo [Recovered/Resolved with Sequelae]

NARRATIVE: CASE EVENT DATE: 201402
